FAERS Safety Report 18398555 (Version 1)
Quarter: 2020Q4

REPORT INFORMATION
  Report Type: Spontaneous
  Country: US (occurrence: US)
  Receive Date: 20201019
  Receipt Date: 20201019
  Transmission Date: 20210114
  Serious: Yes (Other)
  Sender: FDA-Public Use
  Company Number: None

PATIENT
  Age: 57 Year
  Sex: Female

DRUGS (12)
  1. PREDNISONE 10MG [Concomitant]
     Active Substance: PREDNISONE
  2. PANTOPRAZOLE 40MG [Concomitant]
     Active Substance: PANTOPRAZOLE SODIUM
  3. CYCLOSPORINE. [Suspect]
     Active Substance: CYCLOSPORINE
     Indication: RENAL TRANSPLANT
     Route: 048
     Dates: start: 20191126
  4. ATORVASTATIN 10MG [Concomitant]
     Active Substance: ATORVASTATIN
  5. ASPIRIN EC 81MG [Concomitant]
  6. MYCOPHENOLIC ACID. [Suspect]
     Active Substance: MYCOPHENOLIC ACID
     Indication: RENAL TRANSPLANT
     Route: 048
     Dates: start: 20191219
  7. MUCINEX ER 600MG [Concomitant]
  8. CETIRIZINE [Concomitant]
     Active Substance: CETIRIZINE HYDROCHLORIDE
  9. AMLODIPINE [Concomitant]
     Active Substance: AMLODIPINE BESYLATE
  10. MAGNESIUM TABLETS 400MG [Concomitant]
  11. POTASSIUM CHLORIDE 20MEQ ER TABLETS [Concomitant]
  12. BRIVIACT 100MG [Concomitant]

REACTIONS (2)
  - Hair growth abnormal [None]
  - Peripheral swelling [None]
